FAERS Safety Report 23995875 (Version 1)
Quarter: 2024Q2

REPORT INFORMATION
  Report Type: Spontaneous
  Country: JP (occurrence: JP)
  Receive Date: 20240620
  Receipt Date: 20240620
  Transmission Date: 20240716
  Serious: Yes (Hospitalization, Other)
  Sender: FDA-Public Use
  Company Number: JP-PFIZER INC-PV202400034936

PATIENT
  Sex: Female
  Weight: 73.1 kg

DRUGS (3)
  1. XELJANZ [Suspect]
     Active Substance: TOFACITINIB CITRATE
     Indication: Rheumatoid arthritis
     Dosage: 5 MG, 2X/DAY
     Route: 048
     Dates: start: 20180413, end: 20240306
  2. METHOTREXATE SODIUM [Suspect]
     Active Substance: METHOTREXATE SODIUM
     Indication: Rheumatoid arthritis
     Dosage: 8 MG, WEEKLY
     Route: 048
     Dates: start: 20070608, end: 20150916
  3. METHOTREXATE SODIUM [Suspect]
     Active Substance: METHOTREXATE SODIUM
     Dosage: 10 MG, WEEKLY
     Route: 048
     Dates: start: 20150916

REACTIONS (28)
  - COVID-19 pneumonia [Recovered/Resolved]
  - Pneumonia legionella [Recovered/Resolved]
  - Alanine aminotransferase increased [Recovered/Resolved]
  - Antinuclear antibody increased [Unknown]
  - Blood creatine phosphokinase increased [Recovered/Resolved]
  - Blood lactate dehydrogenase increased [Recovered/Resolved]
  - Blood triglycerides increased [Unknown]
  - Aspartate aminotransferase increased [Recovered/Resolved]
  - Blood albumin decreased [Unknown]
  - Blood chloride decreased [Recovered/Resolved]
  - Blood creatine phosphokinase decreased [Recovered/Resolved]
  - Blood iron decreased [Unknown]
  - Blood sodium decreased [Not Recovered/Not Resolved]
  - Blood urea increased [Recovered/Resolved]
  - Brain natriuretic peptide increased [Unknown]
  - Eosinophil percentage increased [Unknown]
  - Eosinophil percentage decreased [Unknown]
  - Gamma-glutamyltransferase increased [Recovered/Resolved]
  - Glycosylated haemoglobin increased [Unknown]
  - Lymphocyte percentage decreased [Recovered/Resolved]
  - Matrix metalloproteinase-3 increased [Unknown]
  - Neutrophil percentage increased [Recovered/Resolved]
  - Platelet count increased [Recovered/Resolved]
  - Procalcitonin increased [Recovered/Resolved]
  - Red blood cell count increased [Recovered/Resolved]
  - Urinary occult blood positive [Recovered/Resolved]
  - White blood cell count increased [Recovered/Resolved]
  - White blood cells urine positive [Unknown]

NARRATIVE: CASE EVENT DATE: 20180413
